FAERS Safety Report 8165687-9 (Version None)
Quarter: 2012Q1

REPORT INFORMATION
  Report Type: 
  Country: None (occurrence: None)
  Receive Date: 20120227
  Receipt Date: 20120215
  Transmission Date: 20120608
  Serious: Yes (Hospitalization)
  Sender: FDA-Public Use
  Company Number: US-BAYER-2012-017035

PATIENT
  Age: 12 Year
  Sex: Female

DRUGS (6)
  1. YASMIN [Suspect]
  2. OXYCODONE HCL [Concomitant]
  3. ANTIBIOTICS [Concomitant]
     Indication: CELLULITIS
  4. VALIUM [Concomitant]
     Dosage: 2 MG, UNK
     Route: 048
  5. CALCIUM CARBONATE [Concomitant]
  6. KEFLEX [Concomitant]

REACTIONS (3)
  - BILE DUCT STONE [None]
  - PULMONARY EMBOLISM [None]
  - CHOLECYSTITIS CHRONIC [None]
